FAERS Safety Report 6194471-0 (Version None)
Quarter: 2009Q2

REPORT INFORMATION
  Report Type: 
  Country: None (occurrence: None)
  Receive Date: 20090519
  Receipt Date: 20090513
  Transmission Date: 20091009
  Serious: Yes (Other)
  Sender: FDA-Public Use
  Company Number: PHEH2009US02989

PATIENT
  Sex: Male
  Weight: 97.234 kg

DRUGS (13)
  1. TASIGNA [Suspect]
     Indication: CHRONIC MYELOID LEUKAEMIA
     Dosage: 400 MG, BID
     Route: 048
     Dates: start: 20090314, end: 20090317
  2. TASIGNA [Suspect]
     Dosage: 200 MG, BID
     Route: 048
     Dates: start: 20090319
  3. ASPIRIN [Concomitant]
     Dosage: 81 MG, UNK
     Route: 048
  4. ATACAND [Concomitant]
     Dosage: 16 MG, QD
     Route: 048
  5. COREG [Concomitant]
     Dosage: 40 MG, QD
     Route: 048
  6. INSPRA [Concomitant]
     Dosage: 25 MG, QD
     Route: 048
  7. CLARITIN [Concomitant]
     Dosage: 10 MG, QD
     Route: 048
  8. LASIX [Concomitant]
     Dosage: 40 MG, QD
     Route: 048
  9. NITRO-DUR [Concomitant]
     Dosage: 0.4 MG, QD
     Route: 048
  10. PLAVIX [Concomitant]
     Dosage: 75 MG, QD
     Route: 048
  11. PREVACID [Concomitant]
     Dosage: 50 MG, QD
     Route: 048
  12. REGLAN [Concomitant]
     Dosage: 5 MG, BID
     Route: 048
  13. VYTORIN [Concomitant]
     Dosage: 10/80 MG DAILY
     Route: 048

REACTIONS (5)
  - HEADACHE [None]
  - HYPOTENSION [None]
  - LOSS OF CONSCIOUSNESS [None]
  - NAUSEA [None]
  - VOMITING [None]
